FAERS Safety Report 6233522-1 (Version None)
Quarter: 2009Q2

REPORT INFORMATION
  Report Type: 
  Country: None (occurrence: None)
  Receive Date: 20090617
  Receipt Date: 20090610
  Transmission Date: 20091009
  Serious: Yes (Hospitalization)
  Sender: FDA-Public Use
  Company Number: AU-SANOFI-SYNTHELABO-A01200905681

PATIENT
  Sex: Male
  Weight: 70 kg

DRUGS (4)
  1. ZOCOR [Concomitant]
     Indication: HYPERCHOLESTEROLAEMIA
     Route: 065
  2. LEVOTHYROXINE SODIUM [Concomitant]
     Indication: HYPOTHYROIDISM
     Route: 065
  3. RIVOTRIL [Concomitant]
     Indication: EPILEPSY
     Route: 065
  4. PLAVIX [Suspect]
     Indication: TRANSIENT ISCHAEMIC ATTACK
     Route: 048
     Dates: start: 20060101

REACTIONS (1)
  - GRAND MAL CONVULSION [None]
